FAERS Safety Report 9275002 (Version 1)
Quarter: 2013Q2

REPORT INFORMATION
  Report Type: Spontaneous
  Country: US (occurrence: None)
  Receive Date: 20130430
  Receipt Date: 20130430
  Transmission Date: 20140414
  Serious: Yes (Other)
  Sender: FDA-Public Use
  Company Number: SYM-2013-03014

PATIENT
  Age: 70 Year
  Sex: Male
  Weight: 86.18 kg

DRUGS (1)
  1. CARAC [Suspect]
     Indication: ACTINIC KERATOSIS
     Route: 061

REACTIONS (1)
  - Neutropenia [None]
